FAERS Safety Report 6305249-9 (Version None)
Quarter: 2009Q3

REPORT INFORMATION
  Report Type: 
  Country: None (occurrence: None)
  Receive Date: 20090811
  Receipt Date: 20090728
  Transmission Date: 20100115
  Serious: No
  Sender: FDA-Public Use
  Company Number: PHEH2009US04462

PATIENT
  Sex: Female

DRUGS (12)
  1. RECLAST [Suspect]
     Indication: OSTEOPENIA
     Dosage: 5 MG, UNK
     Route: 042
     Dates: start: 20090501, end: 20090501
  2. COUMADIN [Concomitant]
  3. LASIX [Concomitant]
  4. DIGOXIN [Concomitant]
  5. LEVOXYL [Concomitant]
  6. COREG [Concomitant]
  7. CRESTOR [Concomitant]
  8. COZAAR [Concomitant]
  9. ASPIRIN [Concomitant]
  10. CALCIUM [Concomitant]
  11. AMBIEN [Concomitant]
  12. CLOTRIMAZOLE [Concomitant]

REACTIONS (9)
  - ABDOMINAL PAIN UPPER [None]
  - ASTHENIA [None]
  - DECREASED APPETITE [None]
  - DIZZINESS [None]
  - HYPOPHAGIA [None]
  - INFLUENZA LIKE ILLNESS [None]
  - MENIERE'S DISEASE [None]
  - NAUSEA [None]
  - PSYCHOTIC DISORDER [None]
